FAERS Safety Report 6312100-X (Version None)
Quarter: 2009Q3

REPORT INFORMATION
  Report Type: 
  Country: None (occurrence: None)
  Receive Date: 20090817
  Receipt Date: 20090810
  Transmission Date: 20100115
  Serious: Yes (Hospitalization, Other)
  Sender: FDA-Public Use
  Company Number: BE-ASTRAZENECA-2009SE05203

PATIENT
  Age: 8 Month
  Weight: 9.7 kg

DRUGS (3)
  1. PRILOSEC [Suspect]
     Dates: start: 20090601, end: 20090701
  2. GAVISCON [Concomitant]
  3. MOTILIUM SP [Concomitant]
     Indication: GASTROOESOPHAGEAL REFLUX DISEASE
     Route: 048
     Dates: start: 20090601, end: 20090701

REACTIONS (2)
  - INFANTILE SPASMS [None]
  - REGURGITATION [None]
